FAERS Safety Report 22079695 (Version 1)
Quarter: 2023Q1

REPORT INFORMATION
  Report Type: Spontaneous
  Country: US (occurrence: US)
  Receive Date: 20230309
  Receipt Date: 20230309
  Transmission Date: 20230417
  Serious: Yes (Other)
  Sender: FDA-Public Use
  Company Number: US-AMGEN-USASP2023038734

PATIENT
  Age: 35 Year

DRUGS (1)
  1. BLINCYTO [Suspect]
     Active Substance: BLINATUMOMAB
     Indication: B precursor type acute leukaemia
     Dosage: 28 MICROGRAM, QD
     Route: 065

REACTIONS (6)
  - Neurotoxicity [Unknown]
  - Fatigue [Unknown]
  - Muscular weakness [Unknown]
  - Memory impairment [Unknown]
  - Headache [Unknown]
  - Drug intolerance [Unknown]
